FAERS Safety Report 26174624 (Version 1)
Quarter: 2025Q4

REPORT INFORMATION
  Report Type: Spontaneous
  Country: US (occurrence: None)
  Receive Date: 20251217
  Receipt Date: 20251217
  Transmission Date: 20260117
  Serious: Yes (Other)
  Sender: FDA-CTU
  Company Number: None

PATIENT
  Age: 64 Year
  Sex: Female

DRUGS (9)
  1. XDEMVY [Suspect]
     Active Substance: LOTILANER
     Dosage: 1 GTT DROP(S) TWICE A DAY INTRAOCULAR
     Route: 031
     Dates: start: 20250909
  2. DOXEPIN [Concomitant]
     Active Substance: DOXEPIN
  3. CICLOPIROX [Concomitant]
     Active Substance: CICLOPIROX
  4. KETOCONAZOLE [Concomitant]
     Active Substance: KETOCONAZOLE
  5. CLOBETASOL [Concomitant]
     Active Substance: CLOBETASOL
  6. FLUNOAZOLE [Concomitant]
  7. OXCARBAZEPINE [Concomitant]
     Active Substance: OXCARBAZEPINE
  8. CALCIUM [Concomitant]
     Active Substance: CALCIUM
  9. VITAMIN D3 [Concomitant]
     Active Substance: CHOLECALCIFEROL

REACTIONS (2)
  - Neuralgia [None]
  - Application site pain [None]

NARRATIVE: CASE EVENT DATE: 20251216
